FAERS Safety Report 15467591 (Version 2)
Quarter: 2019Q1

REPORT INFORMATION
  Report Type: Spontaneous
  Country: GB (occurrence: GB)
  Receive Date: 20181005
  Receipt Date: 20190327
  Transmission Date: 20190417
  Serious: Yes (Death, Hospitalization, Other)
  Sender: FDA-Public Use
  Company Number: GB-ACCORD-073035

PATIENT
  Age: 76 Year
  Sex: Male

DRUGS (5)
  1. CAPECITABINE. [Suspect]
     Active Substance: CAPECITABINE
     Indication: GASTRIC CANCER
     Route: 048
     Dates: start: 20170727
  2. EPIRUBICIN [Suspect]
     Active Substance: EPIRUBICIN
     Indication: GASTRIC CANCER
     Dosage: DATE AND TIME OF LAST ADMINISTRATION: 27-JUL-2017
     Route: 042
     Dates: start: 20170727
  3. CISPLATIN. [Suspect]
     Active Substance: CISPLATIN
     Indication: GASTRIC CANCER
     Dosage: DATE AND TIME OF LAST ADMINISTRATION: 27-JUL-2017
     Route: 042
     Dates: start: 20170727
  4. DEXAMETHASONE. [Suspect]
     Active Substance: DEXAMETHASONE
     Indication: ANTIEMETIC SUPPORTIVE CARE
     Dosage: 8 MG PRE-CHEMOTHERAPY, AND 4 MG TWICE DAILY FOR 3 DAYS POST-CHEMOTHERAPY
     Route: 048
  5. MANNITOL. [Suspect]
     Active Substance: MANNITOL
     Indication: DEHYDRATION
     Dates: start: 20170727

REACTIONS (8)
  - Gastric cancer [Fatal]
  - Condition aggravated [Unknown]
  - Dysphagia [Not Recovered/Not Resolved]
  - Sepsis [Not Recovered/Not Resolved]
  - Abdominal pain [Not Recovered/Not Resolved]
  - Off label use [Unknown]
  - Tumour perforation [Fatal]
  - Nausea [Not Recovered/Not Resolved]

NARRATIVE: CASE EVENT DATE: 20170801
